FAERS Safety Report 14604565 (Version 1)
Quarter: 2018Q1

REPORT INFORMATION
  Report Type: Report from Study
  Country: DE (occurrence: DE)
  Receive Date: 20180306
  Receipt Date: 20180306
  Transmission Date: 20180509
  Serious: Yes (Death, Hospitalization, Other)
  Sender: FDA-Public Use
  Company Number: DE-PFIZER INC-2018091069

PATIENT
  Sex: Female
  Weight: 81 kg

DRUGS (30)
  1. DOCETAXEL. [Suspect]
     Active Substance: DOCETAXEL
     Dosage: 183 MG, EVERY 3 WEEKS
     Route: 042
     Dates: start: 20140826, end: 20140916
  2. CIPROBAY [Concomitant]
     Active Substance: CIPROFLOXACIN
     Indication: LEUKOPENIA
     Dosage: 1000 MG, 1X/DAY
     Route: 048
     Dates: start: 20140523, end: 20140527
  3. DEXAMETHASON [Concomitant]
     Active Substance: DEXAMETHASONE
     Dosage: 8 MG, 1X/DAY
     Route: 048
     Dates: start: 20140303, end: 20140407
  4. DEXAMETHASON [Concomitant]
     Active Substance: DEXAMETHASONE
     Dosage: 2 MG, 1X/DAY
     Route: 048
     Dates: start: 20140414, end: 20140416
  5. DOCETAXEL. [Suspect]
     Active Substance: DOCETAXEL
     Dosage: 116.4 MG, EVERY 3 WEEKS
     Route: 042
     Dates: start: 20140310, end: 20140310
  6. DOCETAXEL. [Suspect]
     Active Substance: DOCETAXEL
     Dosage: 140.25 MG, EVERY 3 WEEKS
     Route: 042
     Dates: start: 20140513, end: 20140513
  7. HERCEPTIN [Suspect]
     Active Substance: TRASTUZUMAB
     Dosage: 648 MG, LOADING DOSE
     Route: 042
  8. TAVEGIL [Concomitant]
     Active Substance: CLEMASTINE FUMARATE
     Dosage: IN EACH CYCLE
     Route: 042
  9. CIPROHEXAL [Concomitant]
     Indication: LEUKOPENIA
     Dosage: 1000 MG, 1X/DAY
     Route: 048
     Dates: start: 20140610, end: 20140617
  10. DOCETAXEL. [Suspect]
     Active Substance: DOCETAXEL
     Dosage: 187 MG, EVERY 3 WEEKS
     Route: 042
     Dates: start: 20140603, end: 20140624
  11. DOCETAXEL. [Suspect]
     Active Substance: DOCETAXEL
     Dosage: 138.75 MG, EVERY 3 WEEKS
     Route: 042
     Dates: start: 20140422, end: 20140422
  12. PERTUZUMAB. [Suspect]
     Active Substance: PERTUZUMAB
     Dosage: 840 MG, (LOADING DOSE)
     Route: 042
  13. HERCEPTIN [Suspect]
     Active Substance: TRASTUZUMAB
     Dosage: 444 MG, EVERY 3 WEEKS
     Route: 042
     Dates: start: 20140331, end: 20140331
  14. HERCEPTIN [Suspect]
     Active Substance: TRASTUZUMAB
     Dosage: 422 MG, UNK
     Route: 042
  15. HERCEPTIN [Suspect]
     Active Substance: TRASTUZUMAB
     Dosage: 486 MG, EVERY 3 WEEKS
     Route: 042
     Dates: start: 20140715, end: 20140715
  16. CIPROBAY [Concomitant]
     Active Substance: CIPROFLOXACIN
     Dosage: 1000 MG, 1X/DAY
     Route: 048
     Dates: start: 20140903, end: 20140907
  17. RANITIDIN [Concomitant]
     Active Substance: RANITIDINE HYDROCHLORIDE
     Indication: PREMEDICATION
     Dosage: 50 MG, UNK
     Route: 042
  18. DEXAMETHASON [Concomitant]
     Active Substance: DEXAMETHASONE
     Dosage: 6 MG, 1X/DAY
     Route: 048
     Dates: start: 20140408, end: 20140410
  19. DOCETAXEL. [Suspect]
     Active Substance: DOCETAXEL
     Indication: HER-2 POSITIVE BREAST CANCER
     Dosage: 140.25 MG, EVERY 3 WEEKS
     Route: 042
     Dates: start: 20140331, end: 20140331
  20. HERCEPTIN [Suspect]
     Active Substance: TRASTUZUMAB
     Dosage: 432 MG, EVERY 3 WEEKS
     Route: 042
     Dates: start: 20130422, end: 20130422
  21. DEXAMETHASON [Concomitant]
     Active Substance: DEXAMETHASONE
     Dosage: 4 MG, 1X/DAY
     Route: 048
     Dates: start: 20140303, end: 20140310
  22. L-THYROXIN [Concomitant]
     Active Substance: LEVOTHYROXINE SODIUM
     Indication: HYPOTHYROIDISM
     Dosage: 75 UG, 1X/DAY
     Route: 048
  23. HERCEPTIN [Suspect]
     Active Substance: TRASTUZUMAB
     Indication: HER-2 POSITIVE BREAST CANCER
     Dosage: 648 MG, EVERY 3 WEEKS
     Route: 042
     Dates: end: 20140916
  24. CIPROBAY [Concomitant]
     Active Substance: CIPROFLOXACIN
     Indication: NEUTROPENIA
     Dosage: 1000 MG, 1X/DAY
     Route: 048
     Dates: start: 20140319, end: 20140324
  25. DEXAMETHASON [Concomitant]
     Active Substance: DEXAMETHASONE
     Dosage: 4 MG, 1X/DAY
     Route: 048
     Dates: start: 20140411, end: 20140413
  26. CIPROHEXAL [Concomitant]
     Indication: NEUTROPENIA
     Dosage: 1000 MG, 1X/DAY
     Route: 048
     Dates: start: 20140812, end: 20140816
  27. HERCEPTIN [Suspect]
     Active Substance: TRASTUZUMAB
     Dosage: 444 MG, EVERY 3 WEEKS
     Route: 042
     Dates: start: 20140513, end: 20140624
  28. PERTUZUMAB. [Suspect]
     Active Substance: PERTUZUMAB
     Indication: HER-2 POSITIVE BREAST CANCER
     Dosage: 420 MG, EVERY 3 WEEKS (MAINTENANCE DOSE)
     Route: 042
     Dates: start: 20140331, end: 20141013
  29. CIPROBAY [Concomitant]
     Active Substance: CIPROFLOXACIN
     Dosage: 1000 MG, 1X/DAY
     Route: 048
     Dates: start: 20140319, end: 20140324
  30. DEXAMETHASON [Concomitant]
     Active Substance: DEXAMETHASONE
     Indication: HYPERSENSITIVITY
     Dosage: 8 MG, UNK
     Route: 042

REACTIONS (19)
  - Compression fracture [Not Recovered/Not Resolved]
  - Fall [Unknown]
  - Gait disturbance [Not Recovered/Not Resolved]
  - Leukopenia [Recovered/Resolved]
  - Leukopenia [Recovered/Resolved]
  - Neoplasm progression [Fatal]
  - Neutropenia [Recovered/Resolved]
  - Dysstasia [Not Recovered/Not Resolved]
  - Cerebral disorder [Fatal]
  - Visual impairment [Not Recovered/Not Resolved]
  - Dysarthria [Not Recovered/Not Resolved]
  - Disorientation [Not Recovered/Not Resolved]
  - Weight decreased [Not Recovered/Not Resolved]
  - Fatigue [Not Recovered/Not Resolved]
  - Visual impairment [Not Recovered/Not Resolved]
  - Paraesthesia [Not Recovered/Not Resolved]
  - Vomiting [Recovered/Resolved]
  - Balance disorder [Not Recovered/Not Resolved]
  - Diarrhoea [Recovered/Resolved]

NARRATIVE: CASE EVENT DATE: 20140312
